FAERS Safety Report 5780237-X (Version None)
Quarter: 2008Q2

REPORT INFORMATION
  Report Type: 
  Country: None (occurrence: None)
  Receive Date: 20080620
  Receipt Date: 20080608
  Transmission Date: 20081010
  Serious: Yes (Other)
  Sender: FDA-Public Use
  Company Number: PHEH2008US05202

PATIENT

DRUGS (1)
  1. RECLAST [Suspect]

REACTIONS (4)
  - ASTHENIA [None]
  - BACK PAIN [None]
  - CHEST PAIN [None]
  - LOSS OF CONSCIOUSNESS [None]
